FAERS Safety Report 15785238 (Version 1)
Quarter: 2019Q1

REPORT INFORMATION
  Report Type: Spontaneous
  Country: US (occurrence: US)
  Receive Date: 20190103
  Receipt Date: 20190103
  Transmission Date: 20190417
  Serious: No
  Sender: FDA-Public Use
  Company Number: US-PFIZER INC-2018533902

PATIENT
  Age: 50 Year
  Sex: Male
  Weight: 72.56 kg

DRUGS (1)
  1. CLINDAMYCIN PHOSPHATE. [Suspect]
     Active Substance: CLINDAMYCIN PHOSPHATE
     Indication: ACNE
     Dosage: UNK UNK, AS NEEDED
     Route: 061
     Dates: end: 20181225

REACTIONS (3)
  - Diarrhoea [Not Recovered/Not Resolved]
  - Urinary tract disorder [Not Recovered/Not Resolved]
  - Gastric disorder [Not Recovered/Not Resolved]
